FAERS Safety Report 22168811 (Version 1)
Quarter: 2023Q2

REPORT INFORMATION
  Report Type: Spontaneous
  Country: CN (occurrence: CN)
  Receive Date: 20230403
  Receipt Date: 20230403
  Transmission Date: 20230721
  Serious: No
  Sender: FDA-Public Use
  Company Number: CN-FreseniusKabi-FK202304194

PATIENT
  Age: 79 Year
  Sex: Male

DRUGS (1)
  1. CARBOHYDRATES\FATTY ACIDS\MINERALS\PROTEIN\VITAMINS [Suspect]
     Active Substance: CARBOHYDRATES\FATTY ACIDS\MINERALS\PROTEIN\VITAMINS
     Indication: Nutritional supplementation
     Dosage: FORM OF ADMIN ORAL EMULSION
     Route: 048
     Dates: start: 20230317, end: 20230323

REACTIONS (1)
  - Abdominal distension [Recovering/Resolving]

NARRATIVE: CASE EVENT DATE: 20230318
